FAERS Safety Report 18226337 (Version 2)
Quarter: 2020Q3

REPORT INFORMATION
  Report Type: Report from Study
  Country: US (occurrence: US)
  Receive Date: 20200903
  Receipt Date: 20200917
  Transmission Date: 20201103
  Serious: Yes (Hospitalization)
  Sender: FDA-Public Use
  Company Number: US-ROCHE-2664626

PATIENT
  Age: 58 Year
  Sex: Female
  Weight: 72 kg

DRUGS (26)
  1. PACKED RED CELLS [Concomitant]
     Active Substance: HUMAN RED BLOOD CELL
     Dosage: 1 UNIT
     Dates: start: 20200724
  2. GABAPENTIN. [Concomitant]
     Active Substance: GABAPENTIN
     Indication: NEUROPATHY PERIPHERAL
     Dates: start: 20200214
  3. PROCHLORPERAZINE. [Concomitant]
     Active Substance: PROCHLORPERAZINE
     Indication: NAUSEA
     Dates: start: 20200423
  4. ONDANSETRON [Concomitant]
     Active Substance: ONDANSETRON
     Indication: NAUSEA
     Dates: start: 20200423
  5. ACYCLOVIR. [Concomitant]
     Active Substance: ACYCLOVIR
     Dates: start: 20020423
  6. LITHIUM CARBONATE. [Concomitant]
     Active Substance: LITHIUM CARBONATE
     Dates: start: 20200123
  7. ENTECAVIR. [Concomitant]
     Active Substance: ENTECAVIR
     Indication: HEPATITIS B
     Dates: start: 20200731
  8. HYDROXYUREA. [Concomitant]
     Active Substance: HYDROXYUREA
     Indication: ANAEMIA
     Dates: start: 20200731
  9. ACETAMINOPHEN. [Concomitant]
     Active Substance: ACETAMINOPHEN
     Dates: start: 20200811, end: 20200811
  10. ACETAMINOPHEN. [Concomitant]
     Active Substance: ACETAMINOPHEN
     Dates: start: 20200814
  11. DIPHENHYDRAMINE. [Concomitant]
     Active Substance: DIPHENHYDRAMINE
     Dates: start: 20200814
  12. ATEZOLIZUMAB. [Suspect]
     Active Substance: ATEZOLIZUMAB
     Indication: ACUTE MYELOID LEUKAEMIA
     Route: 041
  13. CYANOCOBALAMIN. [Concomitant]
     Active Substance: CYANOCOBALAMIN
     Indication: VITAMIN B12 DEFICIENCY
     Dates: start: 20200206
  14. PLATELETS [Concomitant]
     Active Substance: HUMAN PLATELET, ALLOGENIC
     Dosage: 1 UNIT
     Dates: start: 20200814
  15. FAMOTIDINE. [Concomitant]
     Active Substance: FAMOTIDINE
     Dates: start: 20200123
  16. ALBUTEROL. [Concomitant]
     Active Substance: ALBUTEROL
     Indication: DYSPNOEA
     Dates: start: 20200226
  17. OLANZAPINE. [Concomitant]
     Active Substance: OLANZAPINE
     Dates: start: 20200123
  18. DOCUSATE [Concomitant]
     Active Substance: DOCUSATE
     Indication: CONSTIPATION
     Dates: start: 20200403
  19. HYDROMORPHONE [Concomitant]
     Active Substance: HYDROMORPHONE
     Indication: PAIN
     Dates: start: 20200630
  20. DIAZEPAM. [Concomitant]
     Active Substance: DIAZEPAM
     Dates: start: 20200630
  21. HU5F9?G4 (ANTI?CD47 MONOCLONAL ANTIBODY) [Suspect]
     Active Substance: MAGROLIMAB
     Indication: ACUTE MYELOID LEUKAEMIA
     Dosage: MOST RECENT DOSE OF STUDY DRUG PRIOR TO AE AND SAE:  18/AUG/2020 (1083 MG) AT 2.38 PM AND 11/AUG/202
     Route: 042
     Dates: start: 20200811
  22. VORICONAZOLE. [Concomitant]
     Active Substance: VORICONAZOLE
     Dates: start: 20200204
  23. FOLIC ACID. [Concomitant]
     Active Substance: FOLIC ACID
     Indication: FOLATE DEFICIENCY
     Dates: start: 20200206
  24. ONDANSETRON [Concomitant]
     Active Substance: ONDANSETRON
     Indication: VOMITING
  25. NICOTINE. [Concomitant]
     Active Substance: NICOTINE
     Indication: EX-TOBACCO USER
     Dates: start: 20200429
  26. DIPHENHYDRAMINE. [Concomitant]
     Active Substance: DIPHENHYDRAMINE
     Dates: start: 20200811, end: 20200811

REACTIONS (3)
  - Anaemia [Recovered/Resolved]
  - Infusion related reaction [Recovered/Resolved]
  - Anaemia [Not Recovered/Not Resolved]

NARRATIVE: CASE EVENT DATE: 20200815
